FAERS Safety Report 8883675 (Version 1)
Quarter: 2012Q4

REPORT INFORMATION
  Report Type: 
  Country: ES (occurrence: ES)
  Receive Date: 20121102
  Receipt Date: 20121102
  Transmission Date: 20130627
  Serious: Yes (Other)
  Sender: FDA-Public Use
  Company Number: ES-MPIJNJ-2012-07772

PATIENT

DRUGS (1)
  1. VELCADE [Suspect]
     Indication: MULTIPLE MYELOMA
     Route: 058

REACTIONS (1)
  - Toxicity to various agents [Unknown]
